FAERS Safety Report 5675654-2 (Version None)
Quarter: 2008Q1

REPORT INFORMATION
  Report Type: 
  Country: None (occurrence: None)
  Receive Date: 20080321
  Receipt Date: 20080312
  Transmission Date: 20080703
  Serious: Yes (Other)
  Sender: FDA-Public Use
  Company Number: CA-JNJFOC-20080302806

PATIENT
  Age: 5 Decade
  Sex: Female

DRUGS (1)
  1. REMICADE [Suspect]
     Indication: MALABSORPTION
     Route: 042

REACTIONS (1)
  - SPLENECTOMY [None]
